FAERS Safety Report 7572554-8 (Version None)
Quarter: 2011Q2

REPORT INFORMATION
  Report Type: 
  Country: None (occurrence: None)
  Receive Date: 20110627
  Receipt Date: 20110620
  Transmission Date: 20111010
  Serious: No
  Sender: FDA-Public Use
  Company Number: US-BIOGENIDEC-2010BI013406

PATIENT
  Sex: Female

DRUGS (1)
  1. TYSABRI [Suspect]
     Indication: MULTIPLE SCLEROSIS
     Route: 042
     Dates: start: 20080925

REACTIONS (18)
  - NAUSEA [None]
  - WHITE BLOOD CELL COUNT INCREASED [None]
  - FATIGUE [None]
  - DECREASED APPETITE [None]
  - TREMOR [None]
  - MASS [None]
  - ARTHRALGIA [None]
  - PAIN IN EXTREMITY [None]
  - JOINT SPRAIN [None]
  - TEMPERATURE INTOLERANCE [None]
  - DYSGRAPHIA [None]
  - SINUSITIS [None]
  - SOMNOLENCE [None]
  - MOTION SICKNESS [None]
  - MUSCLE SPASTICITY [None]
  - PARAESTHESIA [None]
  - BALANCE DISORDER [None]
  - BACK PAIN [None]
